FAERS Safety Report 9255659 (Version 1)
Quarter: 2013Q1

REPORT INFORMATION
  Report Type: Spontaneous
  Country: US (occurrence: None)
  Receive Date: 20121212
  Receipt Date: 20121212
  Transmission Date: 20140127
  Serious: Yes (Hospitalization)
  Sender: FDA-Public Use
  Company Number: 1210USA001093

PATIENT
  Age: 53 Year
  Sex: Male

DRUGS (5)
  1. VICTRELIS [Suspect]
     Indication: HEPATITIS C
     Dosage: 4 CAPSULES 3 TIMES A DAY
     Route: 048
  2. REBETOL [Suspect]
     Indication: HEPATITIS C
  3. PEGASYS [Suspect]
     Indication: HEPATITIS C
  4. LISINOPRIL (LISINOPRIL) [Concomitant]
  5. REMERON (MIRTAZAPINE) [Concomitant]

REACTIONS (3)
  - Gait disturbance [None]
  - Dyspnoea [None]
  - Rash [None]
